FAERS Safety Report 5876336-4 (Version None)
Quarter: 2008Q3

REPORT INFORMATION
  Report Type: 
  Country: None (occurrence: None)
  Receive Date: 20080908
  Receipt Date: 20080908
  Transmission Date: 20090109
  Serious: Yes (Life-Threatening, Hospitalization)
  Sender: FDA-Public Use
  Company Number: None

PATIENT
  Age: 58 Year
  Sex: Male

DRUGS (3)
  1. WARFARIN SODIUM [Suspect]
  2. PHENYOTIN [Concomitant]
  3. LORTAB [Concomitant]

REACTIONS (2)
  - CEREBRAL HAEMORRHAGE [None]
  - COAGULOPATHY [None]
